FAERS Safety Report 18435466 (Version 8)
Quarter: 2022Q3

REPORT INFORMATION
  Report Type: Spontaneous
  Country: PK (occurrence: PK)
  Receive Date: 20201027
  Receipt Date: 20220822
  Transmission Date: 20221026
  Serious: Yes (Other)
  Sender: FDA-Public Use
  Company Number: PK-PFIZER INC-2019468176

PATIENT
  Age: 24 Year
  Sex: Female
  Weight: 67 kg

DRUGS (25)
  1. ENBREL [Suspect]
     Active Substance: ETANERCEPT
     Indication: Rheumatoid arthritis
     Dosage: 50 MG, WEEKLY
     Route: 058
     Dates: start: 201811
  2. ENBREL [Suspect]
     Active Substance: ETANERCEPT
     Dosage: EVERY 10TH DAY
     Route: 065
     Dates: start: 202101
  3. ENBREL [Suspect]
     Active Substance: ETANERCEPT
     Dosage: 50 MG, WEEKLY
     Route: 058
     Dates: start: 20220510
  4. ENBREL [Suspect]
     Active Substance: ETANERCEPT
     Dosage: 50 MG, WEEKLY
     Route: 058
     Dates: start: 20220608
  5. AVELOX [Concomitant]
     Active Substance: MOXIFLOXACIN HYDROCHLORIDE
     Dosage: 50 MILLIGRAM, QD
  6. ZOLOFT [Concomitant]
     Active Substance: SERTRALINE HYDROCHLORIDE
     Dosage: 100 MILLIGRAM, QD
     Route: 065
  7. FOLIC ACID [Concomitant]
     Active Substance: FOLIC ACID
     Dosage: 5 MG, DAILY(IN THE MORNING, BEFORE MEAL)
  8. HYDROXYCHLOROQUINE SULFATE [Concomitant]
     Active Substance: HYDROXYCHLOROQUINE SULFATE
     Dosage: 200 MG, UNK (200 MG 1+1)
  9. HYDROXYCHLOROQUINE SULFATE [Concomitant]
     Active Substance: HYDROXYCHLOROQUINE SULFATE
     Dosage: 200 MG, 2X/DAY
  10. HYDROXYCHLOROQUINE SULFATE [Concomitant]
     Active Substance: HYDROXYCHLOROQUINE SULFATE
     Dosage: 1+1,AFTER MEAL, TAKE 1 TABLET IN MORNING AND 1 IN NIGHT AFTER MEAL
  11. HYDROXYCHLOROQUINE SULFATE [Concomitant]
     Active Substance: HYDROXYCHLOROQUINE SULFATE
     Dosage: 200 MG (0+0+1+0,AFTER MEAL), AFTER MEAL
  12. DELTACORTRIL [Concomitant]
     Active Substance: PREDNISOLONE
     Dosage: 5 MG, ONCE EVERY THIRD DAY
  13. DELTACORTRIL [Concomitant]
     Active Substance: PREDNISOLONE
     Dosage: 2.5MG ON ALTERNATE DAYS
  14. CAC [Concomitant]
     Dosage: UNK UNK, QD
  15. LOSEC [Concomitant]
     Active Substance: OMEPRAZOLE
     Dosage: 20 MILLIGRAM, QD
  16. METHOTREXATE SODIUM [Concomitant]
     Active Substance: METHOTREXATE SODIUM
     Dosage: UNK
     Dates: start: 201804, end: 201812
  17. SULFASALAZINE [Concomitant]
     Active Substance: SULFASALAZINE
     Dosage: UNK
  18. SULFASALAZINE [Concomitant]
     Active Substance: SULFASALAZINE
     Dosage: 2+2, AFTER MEAL, TAKE 2 TABLET IN MORNING, 2 IN EVENING AFTER MEAL
  19. SULFASALAZINE [Concomitant]
     Active Substance: SULFASALAZINE
     Dosage: 500 MILLIGRAM  *SINGLE
  20. DICLOFENAC SODIUM [Concomitant]
     Active Substance: DICLOFENAC SODIUM
     Indication: Pain
     Dosage: UNK
  21. NEOGAB [Concomitant]
     Dosage: 300 MILLIGRAM
  22. PANADOL [Concomitant]
     Active Substance: ACETAMINOPHEN
     Dosage: 2 DOSAGE FORM
  23. PANADOL [Concomitant]
     Active Substance: ACETAMINOPHEN
     Dosage: 2 DF, AS NEEDED (AFTER MEAL)
  24. CELBEXX [Concomitant]
     Dosage: 200 MILLIGRAM
  25. Sunny d [Concomitant]
     Dosage: 1 DOSAGE FORM, QMO

REACTIONS (25)
  - COVID-19 [Recovered/Resolved]
  - Neck pain [Unknown]
  - Arthralgia [Unknown]
  - Skin discolouration [Recovering/Resolving]
  - Arthralgia [Unknown]
  - Dizziness [Unknown]
  - Epicondylitis [Unknown]
  - Mood swings [Unknown]
  - Pain in extremity [Unknown]
  - Dry mouth [Unknown]
  - Sleep disorder [Unknown]
  - Off label use [Unknown]
  - Back pain [Unknown]
  - Condition aggravated [Unknown]
  - Pain [Unknown]
  - Musculoskeletal stiffness [Unknown]
  - Arthralgia [Unknown]
  - Greater trochanteric pain syndrome [Unknown]
  - Maternal exposure during pregnancy [Unknown]
  - Musculoskeletal pain [Recovering/Resolving]
  - Joint range of motion decreased [Unknown]
  - Arthralgia [Unknown]
  - Musculoskeletal stiffness [Unknown]
  - Lethargy [Unknown]
  - Poor quality sleep [Unknown]

NARRATIVE: CASE EVENT DATE: 20200701
